FAERS Safety Report 12007459 (Version 1)
Quarter: 2016Q1

REPORT INFORMATION
  Report Type: Report from Study
  Country: US (occurrence: US)
  Receive Date: 20160204
  Receipt Date: 20160204
  Transmission Date: 20160526
  Serious: Yes (Hospitalization, Other)
  Sender: FDA-Public Use
  Company Number: US-REGENERON PHARMACEUTICALS, INC.-2016-11231

PATIENT

DRUGS (1)
  1. EYLEA [Suspect]
     Active Substance: AFLIBERCEPT
     Indication: ANAEMIA
     Dosage: 2 MG, MONTHLY
     Route: 031
     Dates: start: 20151228

REACTIONS (2)
  - Hospitalisation [Not Recovered/Not Resolved]
  - Off label use [Not Recovered/Not Resolved]
